FAERS Safety Report 8731788 (Version 2)
Quarter: 2012Q4

REPORT INFORMATION
  Report Type: 
  Country: US (occurrence: US)
  Receive Date: 20120820
  Receipt Date: 20120926
  Transmission Date: 20130627
  Serious: No
  Sender: FDA-Public Use
  Company Number: US-B.I. PHARMACEUTICALS,INC./RIDGEFIELD-2012-BP-18789BP

PATIENT
  Age: 69 Year
  Sex: Female

DRUGS (15)
  1. TRADJENTA [Suspect]
     Indication: TYPE 2 DIABETES MELLITUS
     Dosage: 5 mg
     Dates: start: 20120430, end: 20120807
  2. COZAAR [Concomitant]
     Dosage: 100 mg
  3. LANOXIN [Concomitant]
     Dosage: 0.125 mg
  4. ZETIA [Concomitant]
     Dosage: 10 mg
  5. ZYRTEC [Concomitant]
  6. LOVAZA [Concomitant]
     Dosage: 5 g
  7. COENZYME Q10 [Concomitant]
  8. NEXIUM [Concomitant]
     Dosage: 80 mg
     Route: 048
  9. COREG [Concomitant]
     Dosage: 50 mg
     Route: 048
  10. VALIUM [Concomitant]
  11. ASPIRIN [Concomitant]
     Dosage: 81 mg
     Route: 048
  12. CRESTOR [Concomitant]
     Route: 048
  13. ZEMPLAR [Concomitant]
  14. ENDOCET [Concomitant]
  15. SAXAGLIPTIN [Concomitant]

REACTIONS (2)
  - Alanine aminotransferase increased [Recovered/Resolved]
  - Aspartate aminotransferase increased [Recovered/Resolved]
